FAERS Safety Report 8810408 (Version 1)
Quarter: 2012Q4

REPORT INFORMATION
  Report Type: Report from Study
  Country: IE (occurrence: ZA)
  Receive Date: 20120926
  Receipt Date: 20120926
  Transmission Date: 20130627
  Serious: Yes (Hospitalization, Other)
  Sender: FDA-Public Use
  Company Number: ZA-BRISTOL-MYERS SQUIBB COMPANY-16966368

PATIENT
  Age: 49 Year
  Sex: Female

DRUGS (8)
  1. BMS986001 [Suspect]
     Indication: HIV INFECTION
     Dosage: 1 df:4 caps(4dosage forms are blinded)
No of courses:1
     Route: 048
     Dates: start: 20120829, end: 20120913
  2. EFAVIRENZ [Suspect]
     Indication: HIV INFECTION
     Dosage: No of courses:1
     Route: 048
     Dates: start: 20120829, end: 20120913
  3. LAMIVUDINE [Suspect]
     Indication: HIV INFECTION
     Dosage: No of courses:1
     Route: 048
     Dates: start: 20120829, end: 20120913
  4. BLINDED: PLACEBO [Suspect]
     Indication: HIV INFECTION
     Dates: start: 20120829, end: 20120913
  5. VITAMIN B6 [Concomitant]
     Dates: start: 201203
  6. VITAMIN C [Concomitant]
     Dates: start: 20120727
  7. ZINC [Concomitant]
     Dates: start: 20120727
  8. BACTRIM [Concomitant]
     Dates: start: 20120727, end: 20120829

REACTIONS (5)
  - Drug eruption [Recovered/Resolved with Sequelae]
  - Genital ulceration [Recovered/Resolved with Sequelae]
  - Mouth ulceration [Recovered/Resolved with Sequelae]
  - Erythema nodosum [Recovered/Resolved with Sequelae]
  - Bacterial test positive [None]
